FAERS Safety Report 6944430-2 (Version None)
Quarter: 2010Q3

REPORT INFORMATION
  Report Type: 
  Country: None (occurrence: None)
  Receive Date: 20100827
  Receipt Date: 20100817
  Transmission Date: 20110219
  Serious: Yes (Other)
  Sender: FDA-Public Use
  Company Number: US-JNJFOC-20100806587

PATIENT
  Sex: Male
  Weight: 1.67 kg

DRUGS (4)
  1. ORTHO TRI-CYCLEN LO [Suspect]
     Indication: DRUG EXPOSURE DURING PREGNANCY
     Route: 048
  2. VACCINATION [Suspect]
     Indication: DRUG EXPOSURE DURING PREGNANCY
     Route: 065
  3. ATENOLOL [Suspect]
     Indication: DRUG EXPOSURE DURING PREGNANCY
     Route: 048
  4. TRI-SPRINTEC [Suspect]
     Indication: DRUG EXPOSURE DURING PREGNANCY
     Route: 048

REACTIONS (2)
  - PREMATURE BABY [None]
  - SMALL FOR DATES BABY [None]
